FAERS Safety Report 7381248-3 (Version None)
Quarter: 2011Q1

REPORT INFORMATION
  Report Type: 
  Country: None (occurrence: None)
  Receive Date: 20110329
  Receipt Date: 20110323
  Transmission Date: 20110831
  Serious: Yes (Other)
  Sender: FDA-Public Use
  Company Number: US-ALEXION-A201100259

PATIENT
  Sex: Female

DRUGS (1)
  1. SOLIRIS [Suspect]
     Indication: PAROXYSMAL NOCTURNAL HAEMOGLOBINURIA
     Dosage: UNK
     Route: 042

REACTIONS (10)
  - NEUTROPHIL COUNT DECREASED [None]
  - FATIGUE [None]
  - HAEMOGLOBIN DECREASED [None]
  - BLOOD LACTATE DEHYDROGENASE INCREASED [None]
  - VIRAL INFECTION [None]
  - BLOOD BILIRUBIN ABNORMAL [None]
  - HAEMOGLOBIN URINE PRESENT [None]
  - PLATELET COUNT DECREASED [None]
  - EYE DISCHARGE [None]
  - PAIN [None]
